FAERS Safety Report 20867793 (Version 1)
Quarter: 2022Q2

REPORT INFORMATION
  Report Type: Spontaneous
  Country: US (occurrence: US)
  Receive Date: 20220524
  Receipt Date: 20220524
  Transmission Date: 20220721
  Serious: No
  Sender: FDA-Public Use
  Company Number: US-TAKEDA-2022TUS033093

PATIENT
  Sex: Female

DRUGS (1)
  1. FLEXBUMIN [Suspect]
     Active Substance: ALBUMIN HUMAN
     Indication: Pre-eclampsia
     Dosage: 12.5 GRAM
     Route: 042
     Dates: start: 20220517

REACTIONS (1)
  - Premature delivery [Recovered/Resolved]
